FAERS Safety Report 7749333-1 (Version None)
Quarter: 2011Q3

REPORT INFORMATION
  Report Type: 
  Country: None (occurrence: None)
  Receive Date: 20110908
  Receipt Date: 20110809
  Transmission Date: 20111222
  Serious: Yes (Other)
  Sender: FDA-Public Use
  Company Number: 2011SP015546

PATIENT
  Sex: Female

DRUGS (5)
  1. CYMBALTA [Concomitant]
  2. REMERON [Suspect]
     Indication: DEPRESSION
     Dosage: 15 MG;QD
     Dates: start: 20110311, end: 20110314
  3. TOPAMAX [Concomitant]
  4. ASPIRIN [Concomitant]
  5. INDERAL [Concomitant]

REACTIONS (4)
  - DERMATITIS ALLERGIC [None]
  - NAUSEA [None]
  - VOMITING [None]
  - RASH PUSTULAR [None]
